FAERS Safety Report 18945405 (Version 1)
Quarter: 2021Q1

REPORT INFORMATION
  Report Type: Spontaneous
  Country: DE (occurrence: DE)
  Receive Date: 20210226
  Receipt Date: 20210226
  Transmission Date: 20210420
  Serious: Yes (Other)
  Sender: FDA-Public Use
  Company Number: NVSC2021DE039207

PATIENT
  Sex: Female

DRUGS (3)
  1. METHOTREXATE. [Suspect]
     Active Substance: METHOTREXATE
     Indication: PRODUCT USED FOR UNKNOWN INDICATION
     Dosage: 20 MG
     Route: 065
  2. CERTOLIZUMAB PEGOL [Suspect]
     Active Substance: CERTOLIZUMAB PEGOL
     Indication: RHEUMATOID ARTHRITIS
     Dosage: 400 MG
     Route: 065
     Dates: start: 201606
  3. CERTOLIZUMAB PEGOL [Suspect]
     Active Substance: CERTOLIZUMAB PEGOL
     Dosage: 200 MG
     Route: 065
     Dates: end: 201909

REACTIONS (1)
  - COVID-19 [Recovered/Resolved]

NARRATIVE: CASE EVENT DATE: 202003
